FAERS Safety Report 5044576-2 (Version None)
Quarter: 2006Q2

REPORT INFORMATION
  Report Type: 
  Country: None (occurrence: None)
  Receive Date: 20060601
  Receipt Date: 20060214
  Transmission Date: 20061013
  Serious: No
  Sender: FDA-Public Use
  Company Number: 2006-BP-01725BP

PATIENT
  Sex: Female

DRUGS (4)
  1. SPIRIVA [Suspect]
     Indication: CHRONIC OBSTRUCTIVE PULMONARY DISEASE
     Dosage: 18 MCG (18 MCG),IH
     Dates: start: 20060101, end: 20060101
  2. BUMEX [Concomitant]
  3. PEPCID [Concomitant]
  4. OXYGEN (OXYGEN) [Concomitant]

REACTIONS (6)
  - BLOOD PRESSURE INCREASED [None]
  - HEADACHE [None]
  - HEART RATE INCREASED [None]
  - SKIN BURNING SENSATION [None]
  - SUICIDAL IDEATION [None]
  - VISION BLURRED [None]
